FAERS Safety Report 7198013-2 (Version None)
Quarter: 2010Q4

REPORT INFORMATION
  Report Type: 
  Country: None (occurrence: None)
  Receive Date: 20101227
  Receipt Date: 20100903
  Transmission Date: 20110411
  Serious: Yes (Hospitalization)
  Sender: FDA-Public Use
  Company Number: US-BAYER-200942550NA

PATIENT
  Sex: Female
  Weight: 96.364 kg

DRUGS (4)
  1. YASMIN [Suspect]
     Indication: CONTRACEPTION
     Route: 065
     Dates: start: 20080401, end: 20090801
  2. OCELLA [Suspect]
     Indication: CONTRACEPTION
     Route: 065
  3. NASONEX [Concomitant]
     Indication: PRODUCT USED FOR UNKNOWN INDICATION
     Route: 065
  4. ZYRTEC [Concomitant]
     Indication: PRODUCT USED FOR UNKNOWN INDICATION
     Route: 065

REACTIONS (2)
  - PAIN [None]
  - PULMONARY EMBOLISM [None]
